FAERS Safety Report 6929364-1 (Version None)
Quarter: 2010Q3

REPORT INFORMATION
  Report Type: 
  Country: None (occurrence: None)
  Receive Date: 20100818
  Receipt Date: 20100803
  Transmission Date: 20110219
  Serious: Yes (Hospitalization)
  Sender: FDA-Public Use
  Company Number: KR-JNJFOC-20100802054

PATIENT
  Age: 15 Month
  Sex: Male

DRUGS (3)
  1. INFLIXIMAB, RECOMBINANT [Suspect]
     Indication: KAWASAKI'S DISEASE
     Route: 042
  2. IMMUNE GLOBULIN INTRAVENOUS (HUMAN) [Concomitant]
     Indication: PYREXIA
  3. ASPIRIN [Concomitant]
     Indication: PYREXIA

REACTIONS (1)
  - RELAPSING FEVER [None]
